FAERS Safety Report 24380690 (Version 1)
Quarter: 2024Q3

REPORT INFORMATION
  Report Type: Spontaneous
  Country: CA (occurrence: CA)
  Receive Date: 20240930
  Receipt Date: 20240930
  Transmission Date: 20241016
  Serious: Yes (Other)
  Sender: CIPHER
  Company Number: CA-CIPHER-2024-CA-000783

PATIENT
  Age: 54 Year
  Sex: Female

DRUGS (2)
  1. TRAMADOL HYDROCHLORIDE [Suspect]
     Active Substance: TRAMADOL HYDROCHLORIDE
     Indication: Pain
  2. CONTRAVE [Suspect]
     Active Substance: BUPROPION HYDROCHLORIDE\NALTREXONE HYDROCHLORIDE
     Indication: Weight control
     Route: 048

REACTIONS (12)
  - Nausea [Unknown]
  - Non-alcoholic fatty liver [Unknown]
  - Taste disorder [Unknown]
  - Throat irritation [Unknown]
  - Abdominal pain upper [Unknown]
  - Contraindicated product administered [Unknown]
  - Dislocation of vertebra [Unknown]
  - Dysphagia [Unknown]
  - Food allergy [Unknown]
  - Food craving [Unknown]
  - Joint dislocation [Unknown]
  - Labelled drug-drug interaction issue [Unknown]
